FAERS Safety Report 16966362 (Version 2)
Quarter: 2019Q4

REPORT INFORMATION
  Report Type: Spontaneous
  Country: US (occurrence: US)
  Receive Date: 20191028
  Receipt Date: 20191028
  Transmission Date: 20200122
  Serious: Yes (Hospitalization, Other)
  Sender: FDA-Public Use
  Company Number: US-GALDERMA-US19063460

PATIENT
  Age: 46 Year
  Sex: Female

DRUGS (5)
  1. PREDNISONE. [Concomitant]
     Active Substance: PREDNISONE
     Indication: PEMPHIGOID
     Dates: start: 2016
  2. NIACINAMIDE [Concomitant]
     Active Substance: NIACINAMIDE
     Indication: PEMPHIGOID
     Dates: start: 2016
  3. DOXYCYCLINE. [Suspect]
     Active Substance: DOXYCYCLINE
     Indication: PEMPHIGOID
     Route: 065
     Dates: start: 2016
  4. RITUXIMAB. [Concomitant]
     Active Substance: RITUXIMAB
     Indication: PEMPHIGOID
     Dosage: 375 MG/M2
     Dates: start: 2017
  5. MYCOPHENOLATE MOFETIL. [Concomitant]
     Active Substance: MYCOPHENOLATE MOFETIL
     Indication: PEMPHIGOID
     Dates: start: 2016, end: 2017

REACTIONS (5)
  - Febrile neutropenia [Recovered/Resolved]
  - Intentional product use issue [Recovered/Resolved]
  - Neutropenia [Recovered/Resolved]
  - Drug ineffective for unapproved indication [Recovered/Resolved]
  - Respiratory symptom [Unknown]

NARRATIVE: CASE EVENT DATE: 2016
